FAERS Safety Report 4885377-5 (Version None)
Quarter: 2005Q4

REPORT INFORMATION
  Report Type: 
  Country: None (occurrence: None)
  Receive Date: 20051222
  Receipt Date: 20050404
  Transmission Date: 20060501
  Serious: No
  Sender: FDA-Public Use
  Company Number: 200503157

PATIENT
  Age: 52 Year
  Sex: Female

DRUGS (3)
  1. ELESTAT [Suspect]
     Indication: HYPERSENSITIVITY
     Dosage: 2 DROP BID EYE
     Dates: start: 20050401
  2. AROMASIN [Concomitant]
  3. DETROL [Concomitant]

REACTIONS (1)
  - DIZZINESS [None]
